FAERS Safety Report 5004403-6 (Version None)
Quarter: 2006Q2

REPORT INFORMATION
  Report Type: 
  Country: None (occurrence: None)
  Receive Date: 20060517
  Receipt Date: 20060405
  Transmission Date: 20061013
  Serious: Yes (Hospitalization)
  Sender: FDA-Public Use
  Company Number: CA-AVENTIS-200613655GDDC

PATIENT
  Age: 50 Year
  Sex: Male
  Weight: 114 kg

DRUGS (6)
  1. LANTUS [Suspect]
     Indication: DIABETES MELLITUS
     Route: 058
     Dates: start: 20050715, end: 20060405
  2. TYLENOL W/ CODEINE NO. 3 [Concomitant]
     Route: 048
  3. HYDROCHLOROTHIAZIDE [Concomitant]
     Route: 048
     Dates: start: 20030101
  4. SERAX [Concomitant]
     Route: 048
  5. ALTACE [Concomitant]
     Route: 048
     Dates: start: 20030101
  6. NOVORAPID [Concomitant]
     Route: 058

REACTIONS (5)
  - ABDOMINAL PAIN [None]
  - DIARRHOEA [None]
  - PYREXIA [None]
  - VOMITING [None]
  - WEIGHT DECREASED [None]
